FAERS Safety Report 21474187 (Version 1)
Quarter: 2022Q4

REPORT INFORMATION
  Report Type: Spontaneous
  Country: US (occurrence: US)
  Receive Date: 20221018
  Receipt Date: 20221018
  Transmission Date: 20230113
  Serious: Yes (Other)
  Sender: FDA-Public Use
  Company Number: US-AMERICAN REGENT INC-2022002959

PATIENT
  Sex: Female

DRUGS (1)
  1. VENOFER [Suspect]
     Active Substance: IRON SUCROSE
     Indication: Chronic kidney disease
     Dosage: 400 MILLIGRAM, SINGLE
     Route: 042
     Dates: start: 2022, end: 2022

REACTIONS (4)
  - Tachycardia [Unknown]
  - Nausea [Unknown]
  - Headache [Unknown]
  - Product used for unknown indication [Unknown]

NARRATIVE: CASE EVENT DATE: 20220101
